FAERS Safety Report 25845723 (Version 3)
Quarter: 2025Q4

REPORT INFORMATION
  Report Type: Spontaneous
  Country: GB (occurrence: GB)
  Receive Date: 20250925
  Receipt Date: 20251014
  Transmission Date: 20260117
  Serious: Yes (Other)
  Sender: SANDOZ
  Company Number: GB-MLMSERVICE-20250829-PI628944-00336-1

PATIENT
  Age: 34 Year
  Sex: Male
  Weight: 54 kg

DRUGS (3)
  1. ZOLEDRONIC ACID [Suspect]
     Active Substance: ZOLEDRONIC ACID
     Indication: Bone pain
     Dosage: 1 DF
     Route: 042
     Dates: start: 2022
  2. ZOLEDRONIC ACID [Suspect]
     Active Substance: ZOLEDRONIC ACID
     Indication: Arthralgia
     Dosage: UNK
     Route: 065
     Dates: start: 2020
  3. ZOLEDRONIC ACID [Suspect]
     Active Substance: ZOLEDRONIC ACID
     Indication: Progressive diaphyseal dysplasia

REACTIONS (3)
  - Deafness [Unknown]
  - C-telopeptide increased [Unknown]
  - Bone pain [Recovered/Resolved]

NARRATIVE: CASE EVENT DATE: 20220101
